FAERS Safety Report 13550220 (Version 1)
Quarter: 2017Q2

REPORT INFORMATION
  Report Type: Report from Study
  Country: RU (occurrence: RU)
  Receive Date: 20170516
  Receipt Date: 20170516
  Transmission Date: 20170830
  Serious: Yes (Hospitalization, Other)
  Sender: FDA-Public Use
  Company Number: RU-MYLANLABS-2017M1028420

PATIENT

DRUGS (1)
  1. DILTIAZEM. [Suspect]
     Active Substance: DILTIAZEM
     Indication: PRODUCT USED FOR UNKNOWN INDICATION
     Dosage: 90 TABLETS
     Route: 065

REACTIONS (7)
  - Toxicity to various agents [Recovered/Resolved]
  - Coma [Recovered/Resolved]
  - Shock [Recovered/Resolved]
  - Pneumonia [Recovered/Resolved]
  - Overdose [Recovered/Resolved]
  - Pulmonary oedema [Recovered/Resolved]
  - Acute kidney injury [Recovered/Resolved]
